FAERS Safety Report 5801596-5 (Version None)
Quarter: 2008Q3

REPORT INFORMATION
  Report Type: 
  Country: None (occurrence: None)
  Receive Date: 20080703
  Receipt Date: 20080703
  Transmission Date: 20090109
  Serious: Yes (Death)
  Sender: FDA-Public Use
  Company Number: None

PATIENT
  Age: 72 Year
  Sex: Male
  Weight: 160 kg

DRUGS (1)
  1. DIGITEK 0.125 MG TAB PERTEK PHA [Suspect]
     Indication: CARDIAC FAILURE CONGESTIVE
     Dosage: 0.125MG TAB ONE TABLET EVERY DAY PO
     Route: 048
     Dates: start: 20070904, end: 20080107

REACTIONS (3)
  - CONDITION AGGRAVATED [None]
  - FALL [None]
  - PHARMACEUTICAL PRODUCT COMPLAINT [None]
